FAERS Safety Report 15730046 (Version 2)
Quarter: 2018Q4

REPORT INFORMATION
  Report Type: Report from Study
  Country: CA (occurrence: CA)
  Receive Date: 20181217
  Receipt Date: 20181227
  Transmission Date: 20190205
  Serious: Yes (Other)
  Sender: FDA-Public Use
  Company Number: CA-AMGEN-CANSL2018177228

PATIENT
  Age: 82 Year
  Sex: Female

DRUGS (5)
  1. VITALUX [Concomitant]
     Active Substance: MINERALS\VITAMINS
     Indication: MACULAR DEGENERATION
     Dosage: UNK
  2. VITAMIN D [Concomitant]
     Active Substance: CHOLECALCIFEROL
     Indication: MACULAR DEGENERATION
     Dosage: UNK
  3. ACETYLSALICYLIC ACID [Concomitant]
     Active Substance: ASPIRIN
     Indication: TRANSIENT ISCHAEMIC ATTACK
     Dosage: 81 MG, QD
     Route: 065
     Dates: start: 20130719
  4. PROLIA [Suspect]
     Active Substance: DENOSUMAB
     Indication: OSTEOPOROSIS
     Dosage: 60 MG, Q6MO
     Route: 065
     Dates: start: 20110524
  5. CALCIUM [Concomitant]
     Active Substance: CALCIUM
     Indication: MACULAR DEGENERATION
     Dosage: UNK

REACTIONS (2)
  - Transient ischaemic attack [Unknown]
  - Exostosis of jaw [Unknown]

NARRATIVE: CASE EVENT DATE: 20130522
